FAERS Safety Report 19569950 (Version 2)
Quarter: 2022Q2

REPORT INFORMATION
  Report Type: Spontaneous
  Country: GB (occurrence: GB)
  Receive Date: 20210715
  Receipt Date: 20220401
  Transmission Date: 20220720
  Serious: Yes (Other)
  Sender: FDA-Public Use
  Company Number: None

PATIENT
  Age: 49 Year
  Sex: Female
  Weight: 82.55 kg

DRUGS (3)
  1. SULFASALAZINE [Suspect]
     Active Substance: SULFASALAZINE
     Indication: Rheumatoid arthritis
     Dosage: 1000 MG, 2X/DAY
     Route: 048
     Dates: start: 20210401, end: 20210502
  2. EPILIM [Concomitant]
     Active Substance: VALPROATE SODIUM
     Indication: Epilepsy
  3. VALPROATE SODIUM [Concomitant]
     Active Substance: VALPROATE SODIUM
     Dosage: 2000 MG, 1X/DAY

REACTIONS (6)
  - Epilepsy [Recovered/Resolved]
  - Condition aggravated [Recovered/Resolved]
  - Drug ineffective [Recovered/Resolved]
  - Muscle twitching [Recovered/Resolved]
  - Muscle disorder [Recovered/Resolved]
  - Tonic clonic movements [Recovered/Resolved]

NARRATIVE: CASE EVENT DATE: 20210408
